FAERS Safety Report 7000659-9 (Version None)
Quarter: 2010Q3

REPORT INFORMATION
  Report Type: 
  Country: None (occurrence: None)
  Receive Date: 20100920
  Receipt Date: 20091224
  Transmission Date: 20110219
  Serious: No
  Sender: FDA-Public Use
  Company Number: US-ASTRAZENECA-2009SE33538

PATIENT
  Sex: Male

DRUGS (2)
  1. SEROQUEL [Suspect]
     Indication: DEPRESSION
     Route: 048
     Dates: start: 20091215, end: 20091223
  2. SEROQUEL [Suspect]
     Route: 048
     Dates: start: 20091223

REACTIONS (6)
  - BLOOD PRESSURE INCREASED [None]
  - CONFUSIONAL STATE [None]
  - MUSCLE RIGIDITY [None]
  - MUSCULAR WEAKNESS [None]
  - MYALGIA [None]
  - TREMOR [None]
